FAERS Safety Report 6832345-X (Version None)
Quarter: 2010Q3

REPORT INFORMATION
  Report Type: 
  Country: None (occurrence: None)
  Receive Date: 20100707
  Receipt Date: 20100623
  Transmission Date: 20110219
  Serious: No
  Sender: FDA-Public Use
  Company Number: 1000014597

PATIENT
  Age: 56 Year
  Sex: Female
  Weight: 64 kg

DRUGS (7)
  1. ESCITALOPRAM OXALATE [Suspect]
     Indication: DEPRESSION
     Dosage: 20 MG (20 MG, 1 IN 1 D), ORAL
     Route: 048
     Dates: start: 20070101
  2. EFFEXOR XR [Suspect]
     Indication: DEPRESSION
     Dosage: 75 MG (75 MG, 1 IN 1 D), ORAL
     Route: 048
     Dates: start: 20070501, end: 20070531
  3. CONCERTA [Suspect]
     Indication: ASTHENIA
     Dosage: 72 MG (72 MG, 1 IN 1 D), ORAL
     Route: 048
     Dates: start: 20070501, end: 20080528
  4. SEROQUEL [Suspect]
     Indication: SLEEP DISORDER
     Dosage: 25 MG (25 MG, 1 IN 1 D), ORAL
     Route: 048
     Dates: end: 20070725
  5. ABILIFY [Concomitant]
  6. ADDERALL 10 [Concomitant]
  7. VITAMIN B-12 [Concomitant]

REACTIONS (2)
  - CYST [None]
  - SCAR [None]
